FAERS Safety Report 8127114-7 (Version None)
Quarter: 2011Q4

REPORT INFORMATION
  Report Type: 
  Country: None (occurrence: None)
  Receive Date: 20111227
  Receipt Date: 20111021
  Transmission Date: 20120403
  Serious: No
  Sender: FDA-Public Use
  Company Number: PHHY2011US29862

PATIENT
  Age: 56 Year
  Sex: Female

DRUGS (14)
  1. FENTANYL [Concomitant]
  2. FISH OIL (FISH OIL) [Concomitant]
  3. MIRTAZAPINE [Concomitant]
  4. OXYBUTYNIN [Concomitant]
  5. LASIX [Concomitant]
  6. TRAMADOL HYDROCHLORIDE [Concomitant]
  7. XANAX [Concomitant]
  8. GILENYA [Suspect]
     Indication: MULTIPLE SCLEROSIS
     Dosage: 0.5 MG, QD, ORAL
     Route: 048
     Dates: start: 20110407
  9. NEURONTIN [Concomitant]
  10. PRAVASTATIN [Concomitant]
  11. CALTRATE (CALCIUM CARBONATE0 [Concomitant]
  12. WELLBUTRIN [Concomitant]
  13. STOOL SOFTENER (DOCUSATE SODIUM) [Concomitant]
  14. DAILY MULTIVITAMIN (VITAMINS NOS) [Concomitant]

REACTIONS (3)
  - HEPATIC ENZYME ABNORMAL [None]
  - WHITE BLOOD CELL DISORDER [None]
  - SOMNOLENCE [None]
